FAERS Safety Report 17017923 (Version 3)
Quarter: 2020Q1

REPORT INFORMATION
  Report Type: Spontaneous
  Country: VE (occurrence: VE)
  Receive Date: 20191111
  Receipt Date: 20200310
  Transmission Date: 20200409
  Serious: Yes (Hospitalization, Other)
  Sender: FDA-Public Use
  Company Number: NVSC2019VE030781

PATIENT
  Sex: Female

DRUGS (2)
  1. GLIVEC [Suspect]
     Active Substance: IMATINIB MESYLATE
     Indication: CHRONIC MYELOID LEUKAEMIA
     Dosage: 400 MG, QD
     Route: 048
     Dates: start: 201902
  2. EUTHYROX [Concomitant]
     Active Substance: LEVOTHYROXINE SODIUM
     Indication: HYPOTHYROIDISM
     Dosage: 50 UG, QD
     Route: 048
     Dates: start: 2009

REACTIONS (10)
  - Diarrhoea [Unknown]
  - Respiratory tract infection [Unknown]
  - Infection [Unknown]
  - Blood pressure decreased [Unknown]
  - Asthenia [Unknown]
  - Vomiting [Unknown]
  - Headache [Unknown]
  - Fatigue [Unknown]
  - Cough [Unknown]
  - Pyrexia [Unknown]
